FAERS Safety Report 18544423 (Version 3)
Quarter: 2021Q1

REPORT INFORMATION
  Report Type: Spontaneous
  Country: JP (occurrence: JP)
  Receive Date: 20201125
  Receipt Date: 20210225
  Transmission Date: 20210419
  Serious: Yes (Other)
  Sender: FDA-Public Use
  Company Number: JP-VIIV HEALTHCARE LIMITED-JP2020JPN229531

PATIENT
  Age: 6 Decade
  Sex: Male

DRUGS (8)
  1. TIVICAY [Suspect]
     Active Substance: DOLUTEGRAVIR SODIUM
     Dosage: 50 MG, QD
     Route: 048
     Dates: start: 201808, end: 202011
  2. TIVICAY [Suspect]
     Active Substance: DOLUTEGRAVIR SODIUM
     Dosage: 50 MG, BID
     Route: 048
     Dates: start: 202011
  3. FLUCONAZOLE. [Concomitant]
     Active Substance: FLUCONAZOLE
     Indication: ORAL CANDIDIASIS
     Dosage: UNK
  4. DESCOVY [Concomitant]
     Active Substance: EMTRICITABINE\TENOFOVIR ALAFENAMIDE FUMARATE
     Indication: HIV INFECTION
     Dosage: 1 DF, 1D
     Dates: start: 201806
  5. SEROQUEL [Suspect]
     Active Substance: QUETIAPINE FUMARATE
     Indication: SCHIZOPHRENIA
     Dosage: UNK
     Route: 048
  6. TRUVADA [Concomitant]
     Active Substance: EMTRICITABINE\TENOFOVIR DISOPROXIL FUMARATE
     Indication: HIV INFECTION
     Dosage: 1 DF, QD
     Dates: start: 201504, end: 201806
  7. PREZCOBIX [Suspect]
     Active Substance: COBICISTAT\DARUNAVIR ETHANOLATE
     Indication: HIV INFECTION
     Dosage: 1 DF, QD
     Route: 048
     Dates: start: 201806, end: 201808
  8. TIVICAY [Suspect]
     Active Substance: DOLUTEGRAVIR SODIUM
     Indication: HIV INFECTION
     Dosage: 50 MG, QD
     Route: 048
     Dates: start: 201504, end: 201806

REACTIONS (4)
  - Pathogen resistance [Not Recovered/Not Resolved]
  - Treatment noncompliance [Unknown]
  - Blood HIV RNA increased [Recovering/Resolving]
  - Somnolence [Recovered/Resolved]

NARRATIVE: CASE EVENT DATE: 201806
